FAERS Safety Report 10100733 (Version 1)
Quarter: 2014Q2

REPORT INFORMATION
  Report Type: Spontaneous
  Country: KR (occurrence: KR)
  Receive Date: 20140423
  Receipt Date: 20140423
  Transmission Date: 20141212
  Serious: Yes (Hospitalization)
  Sender: FDA-Public Use
  Company Number: PHHY2014KR047233

PATIENT
  Age: 57 Year
  Sex: Male

DRUGS (3)
  1. DOXORUBICIN [Suspect]
     Indication: HEPATOCELLULAR CARCINOMA
     Dosage: 20 MG, UNK
  2. LIPIODOL [Suspect]
     Indication: HEPATOCELLULAR CARCINOMA
     Dosage: 3 CC
  3. GELFOAM [Suspect]
     Indication: HEPATOCELLULAR CARCINOMA

REACTIONS (16)
  - Spinal cord injury [Recovering/Resolving]
  - Extensor plantar response [Recovering/Resolving]
  - Hypotonia [Recovered/Resolved]
  - Loss of proprioception [Recovered/Resolved]
  - Hyperreflexia [Recovering/Resolving]
  - Clonus [Recovering/Resolving]
  - Spinal cord ischaemia [Recovering/Resolving]
  - Musculoskeletal stiffness [Recovering/Resolving]
  - Paraesthesia [Not Recovered/Not Resolved]
  - Hypoaesthesia [Not Recovered/Not Resolved]
  - Motor dysfunction [Recovered/Resolved]
  - Paraparesis [Recovering/Resolving]
  - Paraplegia [Recovering/Resolving]
  - Asthenia [Recovering/Resolving]
  - Dysuria [Recovering/Resolving]
  - Dyschezia [Recovering/Resolving]
